FAERS Safety Report 9785746 (Version 1)
Quarter: 2013Q4

REPORT INFORMATION
  Report Type: Spontaneous
  Country: PL (occurrence: None)
  Receive Date: 20131223
  Receipt Date: 20131223
  Transmission Date: 20140711
  Serious: Yes (Hospitalization)
  Sender: FDA-Public Use
  Company Number: SP07304

PATIENT
  Age: 39 Year
  Sex: Male

DRUGS (1)
  1. XIFAXAN [Suspect]
     Indication: IRRITABLE BOWEL SYNDROME
     Dosage: 1200 MG ( 400 MG, 3 IN 1 D), ORAL
     Route: 048
     Dates: start: 20131025, end: 20131031

REACTIONS (7)
  - Nausea [None]
  - Vomiting [None]
  - Dyspepsia [None]
  - Tachycardia [None]
  - Weight decreased [None]
  - Decreased appetite [None]
  - Respiratory rate increased [None]
